FAERS Safety Report 16867298 (Version 1)
Quarter: 2019Q4

REPORT INFORMATION
  Report Type: Spontaneous
  Country: US (occurrence: US)
  Receive Date: 20190929
  Receipt Date: 20190929
  Transmission Date: 20200122
  Serious: Yes (Hospitalization, Other)
  Sender: FDA-Public Use
  Company Number: None

PATIENT
  Age: 42 Year
  Sex: Female
  Weight: 53.2 kg

DRUGS (1)
  1. EMGALITY [Suspect]
     Active Substance: GALCANEZUMAB-GNLM
     Indication: MIGRAINE
     Dates: start: 20190920

REACTIONS (7)
  - Epigastric discomfort [None]
  - Gastrointestinal pain [None]
  - Anaphylactic reaction [None]
  - Vomiting [None]
  - Pericardial effusion [None]
  - Abdominal pain [None]
  - Fibrin D dimer increased [None]

NARRATIVE: CASE EVENT DATE: 20190928
